FAERS Safety Report 9817614 (Version 1)
Quarter: 2013Q4

REPORT INFORMATION
  Report Type: Spontaneous
  Country: US (occurrence: None)
  Receive Date: 20131223
  Receipt Date: 20131223
  Transmission Date: 20140711
  Serious: Yes (Other)
  Sender: FDA-Public Use
  Company Number: 217787

PATIENT
  Age: 61 Year
  Sex: Male

DRUGS (1)
  1. PICATO [Suspect]
     Indication: PRECANCEROUS SKIN LESION
     Dosage: (1 IN 1 D), TOPICAL
     Route: 061
     Dates: start: 20120523, end: 20120523

REACTIONS (4)
  - Application site erythema [None]
  - Application site inflammation [None]
  - Application site burn [None]
  - Application site pustules [None]
